FAERS Safety Report 20550818 (Version 1)
Quarter: 2022Q1

REPORT INFORMATION
  Report Type: Spontaneous
  Country: ES (occurrence: ES)
  Receive Date: 20220304
  Receipt Date: 20220304
  Transmission Date: 20220424
  Serious: Yes (Hospitalization)
  Sender: FDA-Public Use
  Company Number: None

PATIENT
  Age: 83 Year
  Sex: Female

DRUGS (8)
  1. FAMCICLOVIR [Suspect]
     Active Substance: FAMCICLOVIR
     Indication: Herpes zoster
     Dosage: FAMCICLOVIR (7059A),UNIT DOSE:250MG
     Route: 048
     Dates: start: 20211029, end: 20211104
  2. AMLODIPINE [Concomitant]
     Active Substance: AMLODIPINE BESYLATE
     Dosage: AMLODIPINE CINFA 5 MG TABLETS EFG, 30 TABLETS,UNIT DOSE:5MG
     Route: 048
     Dates: start: 20210806
  3. CINACALCET HYDROCHLORIDE [Concomitant]
     Active Substance: CINACALCET HYDROCHLORIDE
     Dosage: MIMPARA 30 MG FILM-COATED TABLETS, 28 TABLETS,UNIT DOSE:30MG
     Route: 048
     Dates: start: 20211005
  4. NOLOTIL [Concomitant]
     Dosage: NOLOTIL 575 MG HARD CAPSULES, 20 CAPSULES,UNIT DOSE:575MG
     Route: 048
     Dates: start: 20211029
  5. OMEPRAZOLE [Concomitant]
     Active Substance: OMEPRAZOLE
     Dosage: OMEPRAZOLE CINFAMED 20 MG HARD GASTRO-RESISTANT CAPSULES EFG, 56 CAPSULES,UNIT DOSE:20MG
     Route: 048
     Dates: start: 20210616
  6. MAGNOGENE [Concomitant]
     Dosage: MAGNOGENE 53 MG COATED TABLETS, 45 TABLETS,UNIT DOSE:4.25MILLIEQUILENTS
     Route: 048
     Dates: start: 20210616
  7. CALCIUM CARBONATE [Concomitant]
     Active Substance: CALCIUM CARBONATE
     Dosage: MASTICAL 500 MG CHEWABLE TABLETS, 60 TABLETS,UNIT DOSE:1.25GRAM
     Route: 048
     Dates: start: 20210616
  8. ACETAMINOPHEN [Concomitant]
     Active Substance: ACETAMINOPHEN
     Dosage: PARACETAMOL CINFA 650 MG TABLETS EFG 20 TABLETS,UNIT DOSE:650MG
     Route: 048

REACTIONS (1)
  - Hepatitis acute [Recovering/Resolving]

NARRATIVE: CASE EVENT DATE: 20211129
